FAERS Safety Report 16044144 (Version 7)
Quarter: 2019Q3

REPORT INFORMATION
  Report Type: Report from Study
  Country: US (occurrence: US)
  Receive Date: 20190306
  Receipt Date: 20190809
  Transmission Date: 20191004
  Serious: Yes (Death, Hospitalization)
  Sender: FDA-Public Use
  Company Number: US-ACTELION-A-NJ2018-169804

PATIENT
  Age: 70 Year
  Sex: Male

DRUGS (51)
  1. ENOXAPARIN [Concomitant]
     Active Substance: ENOXAPARIN
     Dosage: 40 MG, UNK
     Dates: start: 20171229
  2. GINKGO BILOBA [Concomitant]
     Active Substance: GINKGO
     Dosage: 60 MG, UNK
     Dates: start: 20160215
  3. HUMALOG MIX [Concomitant]
     Active Substance: INSULIN LISPRO
     Dosage: 75/25
     Dates: start: 20170610
  4. CARVEDILOL. [Concomitant]
     Active Substance: CARVEDILOL
     Dosage: 6.25 MG, BID WITH BREAFAST AND DINNER
     Dates: start: 20161129
  5. APAP/CODEINE [Concomitant]
     Active Substance: ACETAMINOPHEN\CODEINE PHOSPHATE
     Dosage: 30-300 MG
     Dates: start: 20180304
  6. REPATHA [Concomitant]
     Active Substance: EVOLOCUMAB
     Dosage: 140MG/ML INJECT UNDER SKIN EVERY14 DAYS
  7. CINNAMON OIL [Concomitant]
     Active Substance: CINNAMON OIL
     Dosage: UNK
     Dates: start: 20160215
  8. CARVEDILOL. [Concomitant]
     Active Substance: CARVEDILOL
     Dosage: 31.25 MG, UNK
     Dates: start: 20170921
  9. HYDROCODONE BITARTRATE AND ACETAMINOPHEN [Concomitant]
     Active Substance: ACETAMINOPHEN\HYDROCODONE BITARTRATE
     Dosage: 10-325 MG EVERY 4 HOURS AS NEEDED
     Dates: start: 20180213
  10. NYSTATIN. [Concomitant]
     Active Substance: NYSTATIN
     Dosage: 100000 U, UNK
     Dates: start: 20171011
  11. VENTOLIN [Concomitant]
     Active Substance: ALBUTEROL SULFATE
  12. AZELASTINE. [Concomitant]
     Active Substance: AZELASTINE HYDROCHLORIDE
     Dosage: 205.5 MCG, PRN
  13. TIOTROPIUM [Concomitant]
     Active Substance: TIOTROPIUM
     Dosage: 18 MCG, QD
  14. OPSUMIT [Suspect]
     Active Substance: MACITENTAN
     Indication: PULMONARY ARTERIAL HYPERTENSION
     Dosage: 10 MG, QD
     Route: 048
     Dates: start: 20160720
  15. ADCIRCA [Suspect]
     Active Substance: TADALAFIL
     Indication: PULMONARY ARTERIAL HYPERTENSION
     Dosage: 40 MG, QD
     Route: 048
     Dates: start: 20170328
  16. NYSTATIN. [Concomitant]
     Active Substance: NYSTATIN
     Dosage: SWISH 8 ML BY MOUTH AND SWOLLOW FOUR TIMES DAILY
  17. OXYGEN. [Concomitant]
     Active Substance: OXYGEN
     Dosage: 8 LITERS AT REST AND 15 LITERS WITH ACTIVITY
  18. BREO ELLIPTA [Concomitant]
     Active Substance: FLUTICASONE FUROATE\VILANTEROL TRIFENATATE
     Dosage: 100-25
     Dates: start: 20160215
  19. JANUVIA [Concomitant]
     Active Substance: SITAGLIPTIN PHOSPHATE
     Dosage: 100 MG, UNK
     Dates: start: 20110326
  20. ONDANSETRON [Concomitant]
     Active Substance: ONDANSETRON
     Indication: VOMITING
     Dosage: 4 MG, EVERY 6 HOURS AS NEEDED
  21. LEVOFLOXACIN. [Concomitant]
     Active Substance: LEVOFLOXACIN
     Dosage: 500 MG, UNK
     Dates: start: 20180124
  22. CLOTRIMAZOLE. [Concomitant]
     Active Substance: CLOTRIMAZOLE
  23. CHOLECALCIFEROL [Concomitant]
     Active Substance: CHOLECALCIFEROL
     Dosage: 5000 U, QD
  24. LATANOPROST. [Concomitant]
     Active Substance: LATANOPROST
     Dosage: 1 DROP IN EACH EYE AT BEDTIME
  25. MULTIVITAMIN [Concomitant]
     Active Substance: VITAMINS
     Dosage: 1 TAB BY MOUTH QD
  26. TADALAFIL. [Concomitant]
     Active Substance: TADALAFIL
     Dosage: 20 MG, QD
  27. PRAVASTATIN. [Concomitant]
     Active Substance: PRAVASTATIN
     Dosage: 20 MG, UNK
     Dates: start: 20160215
  28. CYCLOBENZAPRINE. [Concomitant]
     Active Substance: CYCLOBENZAPRINE
     Dosage: 10 MG, 8 HOURS AS NEEDED
     Dates: start: 20160215
  29. BENAZEPRIL [Concomitant]
     Active Substance: BENAZEPRIL HYDROCHLORIDE
     Dosage: 40 UNK, UNK
     Dates: start: 20110326
  30. FLUOXETINE [Concomitant]
     Active Substance: FLUOXETINE HYDROCHLORIDE
     Dosage: 40 MG, QD
     Dates: start: 20170710
  31. BRIMONIDINE [Concomitant]
     Active Substance: BRIMONIDINE TARTRATE
     Dosage: UNK
     Route: 047
  32. ATORVASTATIN [Concomitant]
     Active Substance: ATORVASTATIN
  33. HUMALOG [Concomitant]
     Active Substance: INSULIN LISPRO
     Dosage: 30 U IN QS IN THE AM (32 UNIT WHEN TAKING PREDNISONE) AND 15 U IN THE AFTERNOON
  34. PREDNISONE. [Concomitant]
     Active Substance: PREDNISONE
     Dosage: 20 MG, UNK
     Dates: start: 20171122
  35. CONTOUR [Concomitant]
  36. ALBUTEROL. [Concomitant]
     Active Substance: ALBUTEROL
     Indication: WHEEZING
     Dosage: 90 MCG, (1 PUFF TOTAL IN LUNG EVERY 4HOURS AS NEEDED)
  37. SILDENAFIL. [Concomitant]
     Active Substance: SILDENAFIL
     Dosage: 50 MG, UNK
     Dates: start: 20180102
  38. ASPIRIN. [Concomitant]
     Active Substance: ASPIRIN
     Dosage: 325 MG , QD
  39. PRAVASTATIN. [Concomitant]
     Active Substance: PRAVASTATIN
     Dosage: 40 MG, UNK
     Dates: start: 20171026
  40. SPIRIVA [Concomitant]
     Active Substance: TIOTROPIUM BROMIDE MONOHYDRATE
     Dosage: UNK
     Dates: start: 20160215
  41. TIMOLOL. [Concomitant]
     Active Substance: TIMOLOL
     Dosage: 1 DROP IN BOTH EYES EVERY MORNING
     Route: 047
     Dates: start: 20180123
  42. PREDNISONE. [Concomitant]
     Active Substance: PREDNISONE
     Dosage: 10 MG, QD
     Dates: start: 20190218
  43. BRIMONIDINE [Concomitant]
     Active Substance: BRIMONIDINE TARTRATE
     Dosage: 0.2 %, 1 DROP IN BOTH EYES TWICE DAILY
  44. PLAVIX [Concomitant]
     Active Substance: CLOPIDOGREL BISULFATE
     Dosage: 75 MG, UNK
     Dates: start: 20110326
  45. ASPIRIN. [Concomitant]
     Active Substance: ASPIRIN
     Dosage: 81 MG, UNK
     Dates: start: 20160215
  46. GLIMEPIRIDE. [Concomitant]
     Active Substance: GLIMEPIRIDE
     Dosage: 2 MG, UNK
     Dates: start: 20171122
  47. MONTELUKAST [Concomitant]
     Active Substance: MONTELUKAST SODIUM
     Dosage: 10 MG, EVERY EVENING
     Dates: start: 20160206
  48. ULORIC [Concomitant]
     Active Substance: FEBUXOSTAT
     Dosage: 80 MG, QD
     Dates: start: 20171026
  49. ONDANSETRON [Concomitant]
     Active Substance: ONDANSETRON
     Indication: NAUSEA
     Dosage: 8 MG, EVERY 6 HOURS AS NEEDED
     Dates: start: 20180304
  50. AZITHROMYCIN ANHYDROUS. [Concomitant]
     Active Substance: AZITHROMYCIN ANHYDROUS
     Dosage: 250 MG, UNK
     Dates: start: 20180304
  51. FUROSEMIDE. [Concomitant]
     Active Substance: FUROSEMIDE
     Dosage: 20 MG EVERY OTHER DAY
     Dates: start: 20190112

REACTIONS (11)
  - Hospice care [Unknown]
  - Condition aggravated [Fatal]
  - Back disorder [Not Recovered/Not Resolved]
  - Rehabilitation therapy [Unknown]
  - Acute respiratory failure [Fatal]
  - Fluid retention [Unknown]
  - Dyspnoea [Not Recovered/Not Resolved]
  - Hospitalisation [Unknown]
  - Hypoxia [Fatal]
  - Fatigue [Recovered/Resolved]
  - Malaise [Unknown]

NARRATIVE: CASE EVENT DATE: 20190109
